FAERS Safety Report 7865271-8 (Version None)
Quarter: 2011Q4

REPORT INFORMATION
  Report Type: 
  Country: None (occurrence: None)
  Receive Date: 20111028
  Receipt Date: 20101112
  Transmission Date: 20120403
  Serious: No
  Sender: FDA-Public Use
  Company Number: US-GLAXOSMITHKLINE-A0892243A

PATIENT
  Sex: Female

DRUGS (6)
  1. ADVAIR DISKUS 100/50 [Suspect]
     Dosage: 1PUFF TWICE PER DAY
     Route: 055
  2. NERVE MEDICATION [Concomitant]
  3. OXYGEN [Concomitant]
  4. UNKNOWN MEDICATION [Concomitant]
     Indication: GASTROOESOPHAGEAL REFLUX DISEASE
  5. ADVAIR DISKUS 100/50 [Suspect]
     Indication: CHRONIC OBSTRUCTIVE PULMONARY DISEASE
     Dosage: 1PUFF TWICE PER DAY
     Route: 055
     Dates: start: 20070101
  6. UNKNOWN MEDICATION [Concomitant]
     Indication: ANXIETY

REACTIONS (4)
  - THROAT IRRITATION [None]
  - OROPHARYNGEAL PAIN [None]
  - ADVERSE EVENT [None]
  - PRODUCT QUALITY ISSUE [None]
